FAERS Safety Report 23932342 (Version 2)
Quarter: 2024Q2

REPORT INFORMATION
  Report Type: Spontaneous
  Country: AR (occurrence: AR)
  Receive Date: 20240603
  Receipt Date: 20240607
  Transmission Date: 20240715
  Serious: Yes (Hospitalization, Other)
  Sender: FDA-Public Use
  Company Number: AR-PFIZER INC-202400079719

PATIENT
  Age: 61 Year
  Sex: Female

DRUGS (1)
  1. IBRANCE [Suspect]
     Active Substance: PALBOCICLIB
     Indication: Breast cancer metastatic
     Dosage: (DAILY, SCHEME 3X1)
     Dates: start: 20210201, end: 20240524

REACTIONS (10)
  - Dengue fever [Recovered/Resolved]
  - COVID-19 [Not Recovered/Not Resolved]
  - Mastectomy [Not Recovered/Not Resolved]
  - Visual impairment [Not Recovered/Not Resolved]
  - Insomnia [Not Recovered/Not Resolved]
  - Pain [Not Recovered/Not Resolved]
  - Breast disorder [Not Recovered/Not Resolved]
  - Depression [Not Recovered/Not Resolved]
  - Illness [Not Recovered/Not Resolved]
  - Breast pain [Not Recovered/Not Resolved]

NARRATIVE: CASE EVENT DATE: 20240310
